FAERS Safety Report 7118131-4 (Version None)
Quarter: 2010Q4

REPORT INFORMATION
  Report Type: 
  Country: None (occurrence: None)
  Receive Date: 20101123
  Receipt Date: 20101111
  Transmission Date: 20110411
  Serious: No
  Sender: FDA-Public Use
  Company Number: US-PFIZER INC-2010146274

PATIENT
  Sex: Male
  Weight: 90 kg

DRUGS (7)
  1. AMLODIPINE BESYLATE [Suspect]
     Dosage: 10 MG, 2X/DAY
     Route: 048
  2. ACCUPRIL [Suspect]
     Indication: HYPERTENSION
     Dosage: UNK MG, UNK
     Route: 048
  3. ATENOLOL [Suspect]
     Indication: HYPERTENSION
     Dosage: UNK MG, UNK
     Route: 048
  4. TRAMADOL HYDROCHLORIDE [Suspect]
     Indication: BACK PAIN
     Dosage: 325 MG, AS NEEDED
     Route: 048
  5. ENALAPRIL MALEATE [Suspect]
     Indication: HYPERTENSION
     Dosage: 5 MG, UNK
     Route: 048
  6. ENALAPRIL MALEATE [Suspect]
     Dosage: 10 MG, UNK
  7. ACETYLSALICYLIC ACID [Concomitant]
     Indication: ANTICOAGULANT THERAPY
     Dosage: 81 MG, 1X/DAY
     Route: 048

REACTIONS (4)
  - ABDOMINAL PAIN UPPER [None]
  - DIZZINESS [None]
  - DYSPNOEA [None]
  - ERECTILE DYSFUNCTION [None]
